FAERS Safety Report 19826351 (Version 3)
Quarter: 2021Q3

REPORT INFORMATION
  Report Type: Report from Study
  Country: US (occurrence: US)
  Receive Date: 20210914
  Receipt Date: 20210922
  Transmission Date: 20211014
  Serious: No
  Sender: FDA-Public Use
  Company Number: NVSC2021US207877

PATIENT
  Sex: Female

DRUGS (2)
  1. JAKAFI [Suspect]
     Active Substance: RUXOLITINIB
     Indication: ACUTE GRAFT VERSUS HOST DISEASE
     Dosage: 5 MG, QD
     Route: 048
  2. PREDNISONE. [Suspect]
     Active Substance: PREDNISONE
     Indication: PRODUCT USED FOR UNKNOWN INDICATION
     Dosage: UNK
     Route: 065

REACTIONS (2)
  - Fluid retention [Not Recovered/Not Resolved]
  - Swelling [Unknown]
